FAERS Safety Report 21841399 (Version 1)
Quarter: 2023Q1

REPORT INFORMATION
  Report Type: Spontaneous
  Country: DE (occurrence: None)
  Receive Date: 20230110
  Receipt Date: 20230110
  Transmission Date: 20230418
  Serious: No
  Sender: FDA-Public Use
  Company Number: DE-ROCHE-3258246

PATIENT
  Age: 24 Year
  Sex: Male

DRUGS (2)
  1. OCREVUS [Suspect]
     Active Substance: OCRELIZUMAB
     Indication: Multiple sclerosis
     Route: 065
  2. CORTISONE [Suspect]
     Active Substance: CORTISONE
     Indication: Multiple sclerosis
     Route: 065

REACTIONS (4)
  - COVID-19 [Unknown]
  - Pallor [Unknown]
  - Insomnia [Unknown]
  - Asthenia [Unknown]
